FAERS Safety Report 16029075 (Version 1)
Quarter: 2019Q1

REPORT INFORMATION
  Report Type: Spontaneous
  Country: US (occurrence: US)
  Receive Date: 20190204
  Receipt Date: 20190204
  Transmission Date: 20190418
  Serious: No
  Sender: FDA-Public Use
  Company Number: None

PATIENT
  Age: 21 Year
  Sex: Female

DRUGS (1)
  1. MYCOPHENOLIC TAB 360MG DR [Suspect]
     Active Substance: MYCOPHENOLIC ACID
     Indication: SYSTEMIC LUPUS ERYTHEMATOSUS
     Route: 048

REACTIONS (4)
  - Product substitution issue [None]
  - Therapy cessation [None]
  - Vomiting [None]
  - Nausea [None]

NARRATIVE: CASE EVENT DATE: 20190201
